FAERS Safety Report 5862794-8 (Version None)
Quarter: 2008Q3

REPORT INFORMATION
  Report Type: 
  Country: None (occurrence: None)
  Receive Date: 20080828
  Receipt Date: 20080827
  Transmission Date: 20090109
  Serious: Yes (Other)
  Sender: FDA-Public Use
  Company Number: DE-BRISTOL-MYERS SQUIBB COMPANY-14317416

PATIENT
  Age: 42 Year
  Sex: Male

DRUGS (1)
  1. PRAVASIN PROTECT [Suspect]
     Dates: start: 20000101

REACTIONS (1)
  - CATARACT [None]
